FAERS Safety Report 24905617 (Version 1)
Quarter: 2025Q1

REPORT INFORMATION
  Report Type: Report from Study
  Country: US (occurrence: US)
  Receive Date: 20250130
  Receipt Date: 20250130
  Transmission Date: 20250409
  Serious: No
  Sender: HRA PHARMA
  Company Number: US-ORG100014127-2024000115

PATIENT
  Age: 81 Year
  Sex: Female

DRUGS (5)
  1. METOPIRONE [Suspect]
     Active Substance: METYRAPONE
     Indication: Cushing^s syndrome
     Dosage: TAKE UP 4 CAPSULES BY  MOUTH THREE TIMES DAILY
     Dates: start: 20210908
  2. Eliquis tablet 5mg [Concomitant]
     Indication: Product used for unknown indication
  3. Fluconazole tablet 200mg [Concomitant]
     Indication: Product used for unknown indication
  4. Simvastatin tablet 20 mg [Concomitant]
     Indication: Product used for unknown indication
  5. Tramadol HCL tablet 50mg [Concomitant]
     Indication: Product used for unknown indication

REACTIONS (1)
  - Off label use [Unknown]

NARRATIVE: CASE EVENT DATE: 20240423
